FAERS Safety Report 4479070-0 (Version None)
Quarter: 2004Q4

REPORT INFORMATION
  Report Type: 
  Country: None (occurrence: None)
  Receive Date: 20040923
  Receipt Date: 20040625
  Transmission Date: 20050328
  Serious: No
  Sender: FDA-Public Use
  Company Number: 207452

PATIENT
  Sex: Female

DRUGS (1)
  1. AVASTIN [Suspect]
     Dosage: INTRAVENOUS
     Route: 042

REACTIONS (3)
  - INFUSION RELATED REACTION [None]
  - TREMOR [None]
  - VOMITING [None]
